FAERS Safety Report 23804642 (Version 4)
Quarter: 2024Q3

REPORT INFORMATION
  Report Type: Report from Study
  Country: US (occurrence: US)
  Receive Date: 20240501
  Receipt Date: 20240920
  Transmission Date: 20241017
  Serious: Yes (Hospitalization, Other)
  Sender: JAZZ
  Company Number: US-JAZZ PHARMACEUTICALS-2024-US-006848

PATIENT
  Age: 25 Year
  Sex: Male

DRUGS (5)
  1. EPIDIOLEX [Suspect]
     Active Substance: CANNABIDIOL
     Indication: Lennox-Gastaut syndrome
     Dosage: 3.7 MILLILITER, BID
     Route: 048
     Dates: start: 202402
  2. EPIDIOLEX [Suspect]
     Active Substance: CANNABIDIOL
     Dosage: 3.7 MILLILITER, BID
     Route: 048
     Dates: start: 202402
  3. EPIDIOLEX [Suspect]
     Active Substance: CANNABIDIOL
     Dosage: 7.4 MILLILITER, BID
     Route: 048
     Dates: start: 202402
  4. EPIDIOLEX [Suspect]
     Active Substance: CANNABIDIOL
     Dosage: GIVE 3.7 ML BY MOUTH EVERY MORNING AND GIVE 5.6 ML BY MOUTH EVERY EVENING
     Route: 048
     Dates: start: 202402
  5. LORAZEPAM [Suspect]
     Active Substance: LORAZEPAM
     Indication: Product used for unknown indication
     Dosage: UNK

REACTIONS (5)
  - Hospitalisation [Not Recovered/Not Resolved]
  - Hallucination [Unknown]
  - Confusional state [Unknown]
  - Diarrhoea [Not Recovered/Not Resolved]
  - Catatonia [Unknown]

NARRATIVE: CASE EVENT DATE: 20240423
